FAERS Safety Report 14206978 (Version 1)
Quarter: 2017Q4

REPORT INFORMATION
  Report Type: Spontaneous
  Country: US (occurrence: US)
  Receive Date: 20171121
  Receipt Date: 20171121
  Transmission Date: 20180321
  Serious: Yes (Life-Threatening, Hospitalization, Other)
  Sender: FDA-Public Use
  Company Number: US-THE MEDICINES COMPANY-US-MDCO-17-00362

PATIENT
  Age: 89 Year
  Sex: Female
  Weight: 57.7 kg

DRUGS (4)
  1. BRILINTA [Concomitant]
     Active Substance: TICAGRELOR
     Indication: ANTICOAGULANT THERAPY
     Dates: start: 20170622
  2. ANGIOMAX [Suspect]
     Active Substance: BIVALIRUDIN
     Indication: PERCUTANEOUS CORONARY INTERVENTION
     Route: 040
     Dates: start: 20170622, end: 20170622
  3. ASPIRIN. [Concomitant]
     Active Substance: ASPIRIN
     Indication: ANTICOAGULANT THERAPY
     Dates: start: 20170622
  4. ANGIOMAX [Suspect]
     Active Substance: BIVALIRUDIN
     Route: 041
     Dates: start: 20170622, end: 20170622

REACTIONS (1)
  - Vascular stent thrombosis [Recovered/Resolved]

NARRATIVE: CASE EVENT DATE: 20170622
